FAERS Safety Report 6148434-1 (Version None)
Quarter: 2009Q2

REPORT INFORMATION
  Report Type: 
  Country: None (occurrence: None)
  Receive Date: 20090408
  Receipt Date: 20090408
  Transmission Date: 20091009
  Serious: Yes (Other)
  Sender: FDA-Public Use
  Company Number: US-PFIZER INC-2009170462

PATIENT
  Sex: Female
  Weight: 56.689 kg

DRUGS (10)
  1. LYRICA [Suspect]
     Indication: NEURALGIA
     Dosage: 75 MG, 2X/DAY
     Dates: start: 20090208, end: 20090211
  2. LORTAB [Interacting]
     Indication: PAIN
  3. PREDNISONE [Concomitant]
     Dosage: UNK
  4. ZETIA [Concomitant]
     Dosage: 10 MG, 1X/DAY
  5. PLAVIX [Concomitant]
     Dosage: 75 MG, 1X/DAY
  6. SULFAMETHOXAZOLE AND TRIMETHOPRIM [Concomitant]
     Dosage: UNK
  7. PRILOSEC [Concomitant]
     Dosage: 20 MG, 1X/DAY
  8. FLUCONAZOLE [Concomitant]
     Dosage: 100 MG, 1X/DAY
  9. BENTYL [Concomitant]
     Dosage: UNK
  10. LISINOPRIL [Concomitant]
     Dosage: UNK

REACTIONS (10)
  - DEPRESSED LEVEL OF CONSCIOUSNESS [None]
  - DRUG INTERACTION [None]
  - HALLUCINATION [None]
  - HEART RATE INCREASED [None]
  - HYPOTENSION [None]
  - RED BLOOD CELL COUNT DECREASED [None]
  - RENAL IMPAIRMENT [None]
  - RESTLESSNESS [None]
  - SOMNOLENCE [None]
  - STRESS [None]
